FAERS Safety Report 13148894 (Version 6)
Quarter: 2017Q3

REPORT INFORMATION
  Report Type: Spontaneous
  Country: US (occurrence: US)
  Receive Date: 20170125
  Receipt Date: 20170817
  Transmission Date: 20171127
  Serious: Yes (Hospitalization)
  Sender: FDA-Public Use
  Company Number: US-PFIZER INC-2017031049

PATIENT
  Age: 72 Year
  Sex: Female

DRUGS (3)
  1. ELIQUIS [Concomitant]
     Active Substance: APIXABAN
     Dosage: UNK
  2. TIKOSYN [Suspect]
     Active Substance: DOFETILIDE
     Indication: ATRIAL FIBRILLATION
     Dosage: 250 UG, 2X/DAY
     Route: 048
     Dates: start: 201609
  3. TIKOSYN [Interacting]
     Active Substance: DOFETILIDE
     Dosage: 375 UG, 2X/DAY
     Route: 048

REACTIONS (4)
  - Blood oestrogen decreased [Unknown]
  - Drug ineffective [Recovered/Resolved]
  - Palpitations [Unknown]
  - Food interaction [Recovered/Resolved]

NARRATIVE: CASE EVENT DATE: 201701
